FAERS Safety Report 23002645 (Version 2)
Quarter: 2023Q4

REPORT INFORMATION
  Report Type: Spontaneous
  Country: CA (occurrence: CA)
  Receive Date: 20230928
  Receipt Date: 20231027
  Transmission Date: 20240110
  Serious: Yes (Hospitalization)
  Sender: FDA-Public Use
  Company Number: CA-PFIZER INC-2021541657

PATIENT
  Age: 62 Year
  Sex: Female

DRUGS (7)
  1. RUXIENCE [Suspect]
     Active Substance: RITUXIMAB-PVVR
     Indication: Rheumatoid arthritis
     Dosage: 1000 MG [DAY 1 AND DAY 15]
     Route: 042
     Dates: start: 20210108, end: 20210121
  2. RUXIENCE [Suspect]
     Active Substance: RITUXIMAB-PVVR
     Dosage: 1000 MG [DAY 1 AND DAY 15]
     Route: 042
     Dates: start: 20210901, end: 20210915
  3. RUXIENCE [Suspect]
     Active Substance: RITUXIMAB-PVVR
     Dosage: 1000 MG [DAY 1 AND DAY 15]
     Route: 042
     Dates: start: 20230301, end: 20230315
  4. RUXIENCE [Suspect]
     Active Substance: RITUXIMAB-PVVR
     Dosage: 1000 MG [DAY 1 AND DAY 15]
     Route: 042
     Dates: start: 20230601, end: 20230615
  5. CODEINE [Concomitant]
     Active Substance: CODEINE
     Dosage: UNK
  6. ENBREL [Concomitant]
     Active Substance: ETANERCEPT
     Dosage: 1 DF, DOSAGE INFO: UNKNOWN
     Route: 065
     Dates: start: 2007
  7. SULFASALAZINE [Concomitant]
     Active Substance: SULFASALAZINE
     Dosage: UNK

REACTIONS (1)
  - Ankle arthroplasty [Unknown]

NARRATIVE: CASE EVENT DATE: 20210507
